FAERS Safety Report 11682319 (Version 1)
Quarter: 2015Q4

REPORT INFORMATION
  Report Type: Spontaneous
  Country: US (occurrence: US)
  Receive Date: 20151029
  Receipt Date: 20151029
  Transmission Date: 20160304
  Serious: Yes (Other)
  Sender: FDA-Public Use
  Company Number: US-CAREFUSION 213 LLC-1043539

PATIENT
  Age: 26 Year
  Sex: Female

DRUGS (2)
  1. CHLORAPREP WITH TINT [Suspect]
     Active Substance: CHLORHEXIDINE GLUCONATE\ISOPROPYL ALCOHOL
     Indication: PREOPERATIVE CARE
     Route: 061
     Dates: start: 20151020, end: 20151020
  2. PITOCIN [Suspect]
     Active Substance: OXYTOCIN
     Route: 042
     Dates: start: 20151020

REACTIONS (3)
  - Urticaria [Recovered/Resolved]
  - Reaction to drug excipients [None]
  - Anaphylactic reaction [Recovered/Resolved]

NARRATIVE: CASE EVENT DATE: 20151020
